FAERS Safety Report 6260988-3 (Version None)
Quarter: 2009Q3

REPORT INFORMATION
  Report Type: 
  Country: None (occurrence: None)
  Receive Date: 20090709
  Receipt Date: 20090701
  Transmission Date: 20100115
  Serious: Yes (Other)
  Sender: FDA-Public Use
  Company Number: US-ASTRAZENECA-2009UW18437

PATIENT
  Age: 65 Year
  Sex: Female

DRUGS (4)
  1. SEROQUEL [Suspect]
     Indication: SLEEP DISORDER
     Route: 048
     Dates: start: 20040101, end: 20090608
  2. SEROQUEL [Suspect]
     Route: 048
     Dates: end: 20090628
  3. KLONOPIN [Concomitant]
  4. WELLBUTRIN [Concomitant]

REACTIONS (3)
  - INSOMNIA [None]
  - MENISCUS LESION [None]
  - THIRST [None]
